FAERS Safety Report 8313055-9 (Version None)
Quarter: 2012Q2

REPORT INFORMATION
  Report Type: 
  Country: None (occurrence: None)
  Receive Date: 20120426
  Receipt Date: 20120417
  Transmission Date: 20120825
  Serious: Yes (Hospitalization)
  Sender: FDA-Public Use
  Company Number: FR-PFIZER INC-2007104634

PATIENT
  Age: 67 Year
  Sex: Male

DRUGS (6)
  1. FLUOROURACIL [Suspect]
     Indication: CHEMOTHERAPY
     Dosage: 8740 MG, 1X/DAY
     Route: 042
     Dates: start: 20070711, end: 20070716
  2. DOCETAXEL [Suspect]
     Indication: CHEMOTHERAPY
     Dosage: 175 MG, 1X/DAY
     Route: 042
     Dates: start: 20070711
  3. PLITICAN [Suspect]
     Dosage: 100 MG, 1X/DAY
     Route: 042
     Dates: start: 20070711
  4. SOLU-MEDROL [Suspect]
     Dosage: 60 MG, 1X/DAY
     Route: 042
     Dates: start: 20070711, end: 20070715
  5. ZOFRAN [Suspect]
     Route: 042
     Dates: start: 20070711, end: 20070715
  6. CISPLATIN [Suspect]
     Indication: CHEMOTHERAPY
     Dosage: 175 MG, 1X/DAY
     Route: 042
     Dates: start: 20070711

REACTIONS (3)
  - MUCOSAL INFLAMMATION [None]
  - DIARRHOEA [None]
  - FEBRILE BONE MARROW APLASIA [None]
